FAERS Safety Report 4320675-5 (Version None)
Quarter: 2004Q1

REPORT INFORMATION
  Report Type: 
  Country: None (occurrence: None)
  Receive Date: 20040318
  Receipt Date: 20040226
  Transmission Date: 20041129
  Serious: Yes (Life-Threatening, Hospitalization, Disabling, Other)
  Sender: FDA-Public Use
  Company Number: WAES 0402FRA00033

PATIENT
  Age: 66 Year
  Sex: Female

DRUGS (8)
  1. COZAAR [Suspect]
     Indication: CARDIAC FAILURE CONGESTIVE
     Dosage: PO
     Route: 048
     Dates: start: 20030314
  2. TAB FLUINDIONE [Suspect]
     Indication: ATRIAL FIBRILLATION
     Dosage: PO
     Route: 048
     Dates: start: 20030322, end: 20030616
  3. AMIODARONE HCL [Concomitant]
  4. DIGOXIN [Concomitant]
  5. FUROSEMIDE [Concomitant]
  6. NITROGLYCERIN [Concomitant]
  7. POTASSIUM CHLORIDE [Concomitant]
  8. SPIRONOLACTONE [Concomitant]

REACTIONS (7)
  - CEREBRAL HAEMATOMA [None]
  - FALL [None]
  - HEADACHE [None]
  - HEMIPLEGIA [None]
  - INTRACRANIAL HAEMATOMA [None]
  - NEUROLOGICAL EXAMINATION ABNORMAL [None]
  - OVERDOSE [None]
